FAERS Safety Report 7235545-2 (Version None)
Quarter: 2011Q1

REPORT INFORMATION
  Report Type: 
  Country: None (occurrence: None)
  Receive Date: 20110120
  Receipt Date: 20110111
  Transmission Date: 20110831
  Serious: Yes (Hospitalization, Other)
  Sender: FDA-Public Use
  Company Number: PHHY2010CA05710

PATIENT
  Sex: Female

DRUGS (3)
  1. INFLUENZA VACCINE [Suspect]
  2. EXJADE [Suspect]
     Indication: SICKLE CELL ANAEMIA
     Dosage: 1875 MG, QD
     Route: 048
     Dates: start: 20090806
  3. EXJADE [Suspect]
     Dosage: UNK
     Route: 048

REACTIONS (7)
  - SWELLING [None]
  - MOVEMENT DISORDER [None]
  - PAIN [None]
  - SICKLE CELL ANAEMIA WITH CRISIS [None]
  - ABASIA [None]
  - DIARRHOEA [None]
  - HEPATIC FAILURE [None]
